FAERS Safety Report 5872340-0 (Version None)
Quarter: 2008Q3

REPORT INFORMATION
  Report Type: 
  Country: None (occurrence: None)
  Receive Date: 20080902
  Receipt Date: 20080814
  Transmission Date: 20090109
  Serious: Yes (Hospitalization)
  Sender: FDA-Public Use
  Company Number: 2008EU001640

PATIENT
  Age: 53 Year

DRUGS (3)
  1. PROGRAF [Suspect]
     Indication: LUNG TRANSPLANT
  2. MYCOPHENOLATE MOFETIL [Suspect]
     Indication: LUNG TRANSPLANT
  3. CORTICOSTEROIDS() [Suspect]
     Indication: LUNG TRANSPLANT

REACTIONS (2)
  - BACK PAIN [None]
  - SPINAL FRACTURE [None]
